FAERS Safety Report 4464219-6 (Version None)
Quarter: 2004Q4

REPORT INFORMATION
  Report Type: 
  Country: None (occurrence: None)
  Receive Date: 20041001
  Receipt Date: 20040920
  Transmission Date: 20050328
  Serious: Yes (Life-Threatening)
  Sender: FDA-Public Use
  Company Number: FR-GLAXOSMITHKLINE-B0345722A

PATIENT
  Age: 64 Year
  Sex: Female
  Weight: 52 kg

DRUGS (6)
  1. MYLERAN [Suspect]
     Indication: ACUTE MONOCYTIC LEUKAEMIA
     Dosage: 872MG CUMULATIVE DOSE
     Route: 042
     Dates: start: 19900122, end: 19900125
  2. ALKERAN [Suspect]
     Indication: ACUTE MONOCYTIC LEUKAEMIA
     Dosage: 245MG CUMULATIVE DOSE
     Route: 048
     Dates: start: 19900126, end: 19900126
  3. CERUBIDINE [Suspect]
     Indication: ACUTE MONOCYTIC LEUKAEMIA
     Dosage: 725MG CUMULATIVE DOSE
     Route: 042
     Dates: start: 19890804
  4. ARACYTINE [Suspect]
     Indication: ACUTE MONOCYTIC LEUKAEMIA
     Dosage: 1530MG CUMULATIVE DOSE
     Route: 058
     Dates: start: 19890804, end: 19891025
  5. AMSIDINE [Suspect]
     Indication: ACUTE MONOCYTIC LEUKAEMIA
     Route: 042
     Dates: start: 19891210
  6. ETOPOSIDE [Suspect]
     Indication: ACUTE MONOCYTIC LEUKAEMIA
     Route: 042
     Dates: start: 19891210

REACTIONS (9)
  - CHRONIC MYELOMONOCYTIC LEUKAEMIA [None]
  - EPSTEIN-BARR VIRUS INFECTION [None]
  - ERYTHROBLAST MORPHOLOGY ABNORMAL [None]
  - GRANULOCYTES ABNORMAL [None]
  - HEPATITIS C [None]
  - HEPATITIS GRANULOMATOUS [None]
  - LYMPHOPROLIFERATIVE DISORDER [None]
  - MONOCYTE COUNT ABNORMAL [None]
  - WHITE BLOOD CELL DISORDER [None]
